FAERS Safety Report 21219775 (Version 1)
Quarter: 2022Q3

REPORT INFORMATION
  Report Type: Spontaneous
  Country: FR (occurrence: FR)
  Receive Date: 20220817
  Receipt Date: 20220817
  Transmission Date: 20221026
  Serious: Yes (Hospitalization, Other)
  Sender: FDA-Public Use
  Company Number: FR-AFSSAPS-AN20221735

PATIENT
  Age: 82 Year
  Sex: Male
  Weight: 68 kg

DRUGS (9)
  1. LACTULOSE [Suspect]
     Active Substance: LACTULOSE
     Indication: Gastrointestinal motility disorder
     Dosage: 2 DOSAGE FORM, ONCE A DAY
     Route: 048
  2. OMEPRAZOLE [Suspect]
     Active Substance: OMEPRAZOLE
     Indication: Gastrooesophageal reflux disease
     Dosage: 10 MILLIGRAM, ONCE A DAY
     Route: 048
  3. COMIRNATY [Suspect]
     Active Substance: TOZINAMERAN
     Indication: COVID-19 immunisation
     Dosage: 1 DOSAGE FORM,(D1+D2+R1) 3 TOTAL
     Route: 030
     Dates: start: 20210406, end: 20211201
  4. ELIQUIS [Suspect]
     Active Substance: APIXABAN
     Indication: Atrial fibrillation
     Dosage: 10 MILLIGRAM, ONCE A DAY
     Route: 048
     Dates: end: 20220522
  5. MIANSERIN HYDROCHLORIDE [Suspect]
     Active Substance: MIANSERIN HYDROCHLORIDE
     Indication: Mixed anxiety and depressive disorder
     Dosage: 30 MILLIGRAM, ONCE A DAY
     Route: 048
  6. ZINC GLUCONATE [Suspect]
     Active Substance: ZINC GLUCONATE
     Indication: Vitamin D deficiency
     Dosage: 1 DOSAGE FORM, 1 MONTH
     Route: 048
  7. XANAX [Suspect]
     Active Substance: ALPRAZOLAM
     Indication: Mixed anxiety and depressive disorder
     Dosage: 1 DOSAGE FORM, ONCE A DAY
     Route: 048
  8. CHOLECALCIFEROL [Suspect]
     Active Substance: CHOLECALCIFEROL
     Indication: Zinc deficiency
     Dosage: 1 DOSAGE FORM, ONCE A DAY
     Route: 048
  9. CICLOPIROX [Concomitant]
     Active Substance: CICLOPIROX
     Indication: Product used for unknown indication
     Dosage: 1 DOSAGE FORM, 1 TOTAL
     Route: 003
     Dates: end: 20220522

REACTIONS (1)
  - Ischaemic stroke [Recovered/Resolved]

NARRATIVE: CASE EVENT DATE: 20220522
